FAERS Safety Report 20449161 (Version 3)
Quarter: 2022Q1

REPORT INFORMATION
  Report Type: Report from Study
  Country: IT (occurrence: IT)
  Receive Date: 20220209
  Receipt Date: 20220323
  Transmission Date: 20220423
  Serious: Yes (Hospitalization)
  Sender: FDA-Public Use
  Company Number: IT-JNJFOC-20220219321

PATIENT
  Age: 50 Year
  Sex: Female
  Weight: 59 kg

DRUGS (5)
  1. TRABECTEDIN [Suspect]
     Active Substance: TRABECTEDIN
     Indication: Ovarian cancer recurrent
     Route: 042
     Dates: start: 20211224
  2. DOXORUBICIN [Suspect]
     Active Substance: DOXORUBICIN
     Indication: Ovarian cancer recurrent
     Route: 042
     Dates: start: 20211224
  3. PREDNISONE [Concomitant]
     Active Substance: PREDNISONE
  4. PANTOPRAZOLE SODIUM [Concomitant]
     Active Substance: PANTOPRAZOLE SODIUM
  5. XANAX [Concomitant]
     Active Substance: ALPRAZOLAM

REACTIONS (2)
  - Acinetobacter infection [Recovered/Resolved]
  - Device related infection [Recovered/Resolved]

NARRATIVE: CASE EVENT DATE: 20220127
